FAERS Safety Report 9648265 (Version 1)
Quarter: 2013Q4

REPORT INFORMATION
  Report Type: Spontaneous
  Country: US (occurrence: None)
  Receive Date: 20131024
  Receipt Date: 20131024
  Transmission Date: 20140711
  Serious: No
  Sender: FDA-Public Use
  Company Number: None

PATIENT
  Age: 8 Year
  Sex: Male

DRUGS (2)
  1. HAND SANITIZER [Suspect]
     Indication: INFECTION PROPHYLAXIS
     Dosage: SLATHER ON A LOT, THREE TIMES A DAY, ON THE SKIN
     Dates: start: 20131001, end: 20131021
  2. FLINTSTONE^S CHILDREN^S VITAMINS [Concomitant]

REACTIONS (3)
  - Skin fissures [None]
  - Rash erythematous [None]
  - Skin irritation [None]
